FAERS Safety Report 23410082 (Version 1)
Quarter: 2024Q1

REPORT INFORMATION
  Report Type: Spontaneous
  Country: US (occurrence: US)
  Receive Date: 20240117
  Receipt Date: 20240117
  Transmission Date: 20240410
  Serious: No
  Sender: FDA-Public Use
  Company Number: CID000000000042674

PATIENT
  Age: 41 Year
  Weight: 101.15 kg

DRUGS (11)
  1. COPAXONE [Suspect]
     Active Substance: GLATIRAMER ACETATE
     Dosage: TIME INTERVAL: 0.33333333 WEEKS: DOSAGE: 40 MG/ML
     Route: 065
  2. GABAPENTIN [Concomitant]
     Active Substance: GABAPENTIN
     Dosage: GABAPENTIN 300MG CAPSULE TAKE 1 CAPSULE TWICE A DAY,
  3. LISINOPRIL [Concomitant]
     Active Substance: LISINOPRIL
     Route: 048
  4. AMITRIPTYLINE [Concomitant]
     Active Substance: AMITRIPTYLINE
     Dosage: 1 TABLET EVERY DAY AT BEDTIME FOR 30 DAYS,
  5. ASPIRIN [Concomitant]
     Active Substance: ASPIRIN
  6. bupropion hcl xl 150mg 24 hours tablet extended release [Concomitant]
     Dosage: 24 HOURS TABLET EXTENDED RELEASE
  7. ROSUVASTATIN [Concomitant]
     Active Substance: ROSUVASTATIN
     Route: 048
  8. SINGULAIR [Concomitant]
     Active Substance: MONTELUKAST SODIUM
     Route: 048
  9. TOPIRAMATE [Concomitant]
     Active Substance: TOPIRAMATE
     Dosage: TAKE 1 TABLET TWICE A DAY BY ORAL ROUTE,
     Route: 048
  10. TYLENOL [Concomitant]
     Active Substance: ACETAMINOPHEN
     Dosage: 2 TABLETS EVERY 6 HOURS AS NEEDED
  11. ergocalciferol (vitamin D2) 1250mcg [Concomitant]
     Dosage: TAKE 1 CAPSULE EVERY WEEK BY ORAL ROUTE.
     Route: 048

REACTIONS (3)
  - Seasonal allergy [Unknown]
  - Rhinorrhoea [Unknown]
  - Cough [Unknown]
